FAERS Safety Report 9166068 (Version 1)
Quarter: 2013Q1

REPORT INFORMATION
  Report Type: Spontaneous
  Country: IT (occurrence: IT)
  Receive Date: 20130315
  Receipt Date: 20130315
  Transmission Date: 20140127
  Serious: Yes (Hospitalization)
  Sender: FDA-Public Use
  Company Number: IT-ASTRAZENECA-2013SE15588

PATIENT
  Age: 29124 Day
  Sex: Male

DRUGS (4)
  1. BRILIQUE [Suspect]
     Indication: ACUTE CORONARY SYNDROME
     Route: 048
     Dates: start: 20130213, end: 20130215
  2. CLEXANE [Concomitant]
     Indication: ACUTE CORONARY SYNDROME
     Dosage: 6000 I.U./0.6 ML SOLUTION FOR INJECTION FOR SUBCUTANEOUS USE
     Route: 058
  3. FUROSEMIDE [Concomitant]
     Indication: DIURETIC THERAPY
     Route: 048
  4. PANTORC [Concomitant]
     Indication: PROPHYLAXIS AGAINST GASTROINTESTINAL ULCER

REACTIONS (1)
  - Neutropenia [Recovered/Resolved]
